FAERS Safety Report 10354215 (Version 1)
Quarter: 2014Q3

REPORT INFORMATION
  Report Type: Spontaneous
  Country: US (occurrence: US)
  Receive Date: 20140731
  Receipt Date: 20140731
  Transmission Date: 20150326
  Serious: Yes (Other)
  Sender: FDA-Public Use
  Company Number: US-BEH-2014044126

PATIENT
  Sex: Female
  Weight: 74 kg

DRUGS (21)
  1. TRAVATAN-Z [Concomitant]
  2. NITROSTAT [Concomitant]
     Active Substance: NITROGLYCERIN
  3. LORAZEPAM. [Concomitant]
     Active Substance: LORAZEPAM
  4. FOLIC ACID. [Concomitant]
     Active Substance: FOLIC ACID
  5. LEVOTHYROXINE [Concomitant]
     Active Substance: LEVOTHYROXINE
  6. CIPROFLOXACIN. [Concomitant]
     Active Substance: CIPROFLOXACIN
  7. AMIODARONE [Concomitant]
     Active Substance: AMIODARONE
  8. MOBIC [Concomitant]
     Active Substance: MELOXICAM
  9. HIZENTRA [Suspect]
     Active Substance: HUMAN IMMUNOGLOBULIN G
     Dosage: INFUSE VIA 2-3 SITES OVER 1-2 HOURS
     Route: 058
  10. PANTOPRAZOLE [Concomitant]
     Active Substance: PANTOPRAZOLE SODIUM
  11. SERTRALINE [Concomitant]
     Active Substance: SERTRALINE HYDROCHLORIDE
  12. WARFARIN [Concomitant]
     Active Substance: WARFARIN
  13. LOSARTAN [Concomitant]
     Active Substance: LOSARTAN
  14. FUROSEMIDE. [Concomitant]
     Active Substance: FUROSEMIDE
  15. ADVAIR HFA [Concomitant]
     Active Substance: FLUTICASONE PROPIONATE\SALMETEROL XINAFOATE
  16. KLOR-CON [Concomitant]
     Active Substance: POTASSIUM CHLORIDE
  17. ALBUTEROL. [Concomitant]
     Active Substance: ALBUTEROL
  18. IPRATROPIUM [Concomitant]
     Active Substance: IPRATROPIUM
  19. HIZENTRA [Suspect]
     Active Substance: HUMAN IMMUNOGLOBULIN G
     Indication: IMMUNODEFICIENCY COMMON VARIABLE
     Dosage: VIA 2-3 SITES OVER 1-2 HOURS
     Route: 058
  20. VICODIN ES [Concomitant]
     Active Substance: ACETAMINOPHEN\HYDROCODONE BITARTRATE
  21. DILACOR [Concomitant]

REACTIONS (1)
  - Akinesia [Unknown]
